FAERS Safety Report 13268318 (Version 1)
Quarter: 2017Q1

REPORT INFORMATION
  Report Type: Spontaneous
  Country: US (occurrence: US)
  Receive Date: 20170224
  Receipt Date: 20170224
  Transmission Date: 20170428
  Serious: Yes (Other)
  Sender: FDA-Public Use
  Company Number: US-SHIONOGI, INC.-2017000027

PATIENT
  Age: 56 Year
  Sex: Female
  Weight: 68.93 kg

DRUGS (1)
  1. OSPHENA [Suspect]
     Active Substance: OSPEMIFENE
     Indication: DYSPAREUNIA
     Dosage: 60 MG, UNK
     Route: 048
     Dates: start: 20161214, end: 20161219

REACTIONS (1)
  - Genital haemorrhage [Unknown]

NARRATIVE: CASE EVENT DATE: 20161223
